FAERS Safety Report 4357725-6 (Version None)
Quarter: 2004Q2

REPORT INFORMATION
  Report Type: 
  Country: None (occurrence: None)
  Receive Date: 20040513
  Receipt Date: 20040506
  Transmission Date: 20050107
  Serious: Yes (Hospitalization)
  Sender: FDA-Public Use
  Company Number: BW-GLAXOSMITHKLINE-B0332098A

PATIENT
  Age: 27 Year
  Sex: Female

DRUGS (2)
  1. COMBIVIR [Suspect]
     Indication: HIV INFECTION
     Route: 048
     Dates: start: 20030130
  2. EFAVIRENZ [Suspect]
     Indication: HIV INFECTION
     Dates: start: 20030130

REACTIONS (4)
  - DIZZINESS [None]
  - HEADACHE [None]
  - MOOD ALTERED [None]
  - NIGHTMARE [None]
